FAERS Safety Report 10014978 (Version 1)
Quarter: 2014Q1

REPORT INFORMATION
  Report Type: Spontaneous
  Country: US (occurrence: US)
  Receive Date: 20140317
  Receipt Date: 20140317
  Transmission Date: 20141002
  Serious: Yes (Hospitalization)
  Sender: FDA-Public Use
  Company Number: US-B.I. PHARMACEUTICALS,INC./RIDGEFIELD-2014-BI-11042BP

PATIENT
  Sex: Male

DRUGS (2)
  1. DULCOLAX TABLETS [Suspect]
     Indication: CONSTIPATION
     Route: 065
     Dates: start: 20120421
  2. MORPHINE [Concomitant]
     Indication: ABDOMINAL OPERATION
     Route: 065
     Dates: start: 201204

REACTIONS (1)
  - Thrombosis [Recovered/Resolved]
